FAERS Safety Report 5598736-2 (Version None)
Quarter: 2008Q1

REPORT INFORMATION
  Report Type: 
  Country: None (occurrence: None)
  Receive Date: 20080122
  Receipt Date: 20080117
  Transmission Date: 20080703
  Serious: Yes (Hospitalization)
  Sender: FDA-Public Use
  Company Number: SE-GENENTECH-254474

PATIENT
  Sex: Male

DRUGS (1)
  1. RAPTIVA [Suspect]
     Indication: ACRODERMATITIS
     Dosage: 100 MG, 1/WEEK
     Route: 058
     Dates: start: 20070515

REACTIONS (2)
  - TUBULOINTERSTITIAL NEPHRITIS [None]
  - URINARY TRACT INFECTION [None]
